FAERS Safety Report 4515111-X (Version None)
Quarter: 2004Q4

REPORT INFORMATION
  Report Type: 
  Country: None (occurrence: None)
  Receive Date: 20041201
  Receipt Date: 20041122
  Transmission Date: 20050328
  Serious: Yes (Other)
  Sender: FDA-Public Use
  Company Number: PHNU2004DE03920

PATIENT
  Sex: Male

DRUGS (3)
  1. CLOZARIL [Suspect]
     Dosage: UNKNOWN
     Route: 048
  2. VALPROIC ACID [Concomitant]
     Dosage: UNKNOWN
     Route: 048
  3. TRILEPTAL [Concomitant]
     Dosage: UNKNOWN
     Route: 048

REACTIONS (3)
  - MYOSITIS [None]
  - RED BLOOD CELL SEDIMENTATION RATE INCREASED [None]
  - TORTICOLLIS [None]
